FAERS Safety Report 19157298 (Version 1)
Quarter: 2021Q2

REPORT INFORMATION
  Report Type: Spontaneous
  Country: US (occurrence: US)
  Receive Date: 20210419
  Receipt Date: 20210419
  Transmission Date: 20210717
  Serious: Yes (Hospitalization)
  Sender: FDA-Public Use
  Company Number: None

PATIENT
  Age: 42 Year
  Sex: Female

DRUGS (21)
  1. MODAFINIL. [Concomitant]
     Active Substance: MODAFINIL
  2. MULTIVITAMIN/MINERAL [Concomitant]
  3. ADVIL [Concomitant]
     Active Substance: IBUPROFEN
  4. DICLOFENAC DR [Concomitant]
     Active Substance: DICLOFENAC SODIUM
  5. DICYCLOMINE [Concomitant]
     Active Substance: DICYCLOMINE HYDROCHLORIDE
  6. FIBERCON [Concomitant]
     Active Substance: CALCIUM POLYCARBOPHIL
  7. TRAMADOL HCL [Concomitant]
     Active Substance: TRAMADOL HYDROCHLORIDE
  8. UNITHROID [Concomitant]
     Active Substance: LEVOTHYROXINE SODIUM
  9. VENTOLIN HFA [Concomitant]
     Active Substance: ALBUTEROL SULFATE
  10. LEVOCETIRIZI [Concomitant]
  11. BLISOVIFE [Concomitant]
  12. DULOXETINE. [Concomitant]
     Active Substance: DULOXETINE
  13. FLUOXETINE [Concomitant]
     Active Substance: FLUOXETINE HYDROCHLORIDE
  14. CYCLOBENZAPR [Concomitant]
     Active Substance: CYCLOBENZAPRINE
  15. FLUTICASONE SPR [Concomitant]
  16. ONDANSETRON [Concomitant]
     Active Substance: ONDANSETRON
  17. PROMETHAZINE [Concomitant]
     Active Substance: PROMETHAZINE HYDROCHLORIDE
  18. GILENYA [Suspect]
     Active Substance: FINGOLIMOD HYDROCHLORIDE
     Indication: MULTIPLE SCLEROSIS
     Dosage: ?          OTHER DOSE:1 CAP;?
     Route: 048
     Dates: start: 20190306
  19. GABAPENTIN. [Concomitant]
     Active Substance: GABAPENTIN
  20. TYLENOL [Concomitant]
     Active Substance: ACETAMINOPHEN
  21. VITAMIN D3 [Concomitant]
     Active Substance: CHOLECALCIFEROL

REACTIONS (3)
  - Therapy interrupted [None]
  - Nausea [None]
  - COVID-19 [None]

NARRATIVE: CASE EVENT DATE: 20210323
